FAERS Safety Report 5083162-5 (Version None)
Quarter: 2006Q3

REPORT INFORMATION
  Report Type: 
  Country: None (occurrence: None)
  Receive Date: 20060818
  Receipt Date: 20060814
  Transmission Date: 20061208
  Serious: Yes (Other)
  Sender: FDA-Public Use
  Company Number: GB-SP-2006-02151

PATIENT
  Sex: Male

DRUGS (1)
  1. IMMUCYST [Suspect]
     Indication: BLADDER CANCER
     Route: 043
     Dates: end: 20060401

REACTIONS (4)
  - ADDISON'S DISEASE [None]
  - ANAEMIA [None]
  - BOVINE TUBERCULOSIS [None]
  - WEIGHT DECREASED [None]
